FAERS Safety Report 9682786 (Version 2)
Quarter: 2014Q1

REPORT INFORMATION
  Report Type: Report from Study
  Country: US (occurrence: US)
  Receive Date: 20131112
  Receipt Date: 20140203
  Transmission Date: 20141002
  Serious: Yes (Other)
  Sender: FDA-Public Use
  Company Number: PHEH2013US023340

PATIENT
  Age: 29 Year
  Sex: Female

DRUGS (2)
  1. GILENYA [Suspect]
     Indication: MULTIPLE SCLEROSIS
     Dosage: 0.5 MG, QD
     Route: 048
     Dates: start: 20130515
  2. GABAPENTIN [Concomitant]

REACTIONS (8)
  - Inner ear disorder [Recovering/Resolving]
  - Tonsillitis [Recovering/Resolving]
  - Pharyngitis streptococcal [Recovering/Resolving]
  - Cough [Recovering/Resolving]
  - Herpes zoster [Recovered/Resolved]
  - Neuralgia [Recovering/Resolving]
  - Skin lesion [Recovering/Resolving]
  - Hypoaesthesia [Unknown]
